FAERS Safety Report 24864889 (Version 1)
Quarter: 2025Q1

REPORT INFORMATION
  Report Type: Spontaneous
  Country: GB (occurrence: GB)
  Receive Date: 20250121
  Receipt Date: 20250121
  Transmission Date: 20250409
  Serious: Yes (Other)
  Sender: TEVA
  Company Number: GB-MHRA-TPP55081523C21736409YC1736761867136

PATIENT
  Age: 81 Year
  Sex: Female
  Weight: 89 kg

DRUGS (8)
  1. RAMIPRIL [Suspect]
     Active Substance: RAMIPRIL
     Indication: Product used for unknown indication
     Dosage: ONE TO BE TAKEN EACH DAY,  DAILY DOSE: 5 MG DAILY
     Route: 065
     Dates: start: 20241201
  2. APIXABAN [Concomitant]
     Active Substance: APIXABAN
     Indication: Product used for unknown indication
     Dosage: TAKE ONE TABLET TWICE A DAY, DAILY DOSE: 2 DOSAGE FORM DAILY
     Route: 065
     Dates: start: 20241001
  3. SUNVIT D3 [Concomitant]
     Indication: Product used for unknown indication
     Dosage: TAKE ONE TWICE A DAY, LEMON, DAILY DOSE: 2 DOSAGE FORM DAILY
     Route: 065
     Dates: start: 20240118
  4. LERCANIDIPINE HYDROCHLORIDE [Concomitant]
     Active Substance: LERCANIDIPINE HYDROCHLORIDE
     Indication: Product used for unknown indication
     Dosage: ONE TO BE TAKEN EACH DAY, DAILY DOSE FORM: 1 DOSAGE FORM DAILY
     Route: 065
     Dates: start: 20240118
  5. ESOMEPRAZOLE [Concomitant]
     Active Substance: ESOMEPRAZOLE
     Indication: Product used for unknown indication
     Dosage: ONE TO BE TAKEN EACH DAY, DAILY DOSE: 1 DOSAGE FORM DAILY
     Route: 065
     Dates: start: 20240118
  6. BISOPROLOL [Concomitant]
     Active Substance: BISOPROLOL
     Indication: Ill-defined disorder
     Dosage: TAKE ONE TABLET ONCE A DAY, DAILY DOSE: 1 DOSAGE FORM DAILY
     Route: 065
     Dates: start: 20241001
  7. ATORVASTATIN [Concomitant]
     Active Substance: ATORVASTATIN
     Indication: Product used for unknown indication
     Dosage: ONE TO BE TAKEN EACH NIGHT, DAILY DOSE: 1 DOSAGE FORM DAILY
     Route: 065
     Dates: start: 20240118
  8. ACETAMINOPHEN [Concomitant]
     Active Substance: ACETAMINOPHEN
     Indication: Product used for unknown indication
     Dosage: TAKE TWO THREE TIMES A DAY, DAILY DOSE: 6 DOSAGE FORM DAILY
     Route: 065
     Dates: start: 20240118

REACTIONS (1)
  - Hyperkalaemia [Recovering/Resolving]

NARRATIVE: CASE EVENT DATE: 20241218
